FAERS Safety Report 5592549-3 (Version None)
Quarter: 2008Q1

REPORT INFORMATION
  Report Type: 
  Country: None (occurrence: None)
  Receive Date: 20080111
  Receipt Date: 20071128
  Transmission Date: 20080703
  Serious: Yes (Death, Other)
  Sender: FDA-Public Use
  Company Number: 17966

PATIENT
  Age: 21 Year
  Sex: Male

DRUGS (8)
  1. VINCRISTINE [Suspect]
     Indication: ACUTE LYMPHOCYTIC LEUKAEMIA
  2. PREDNISONE [Concomitant]
  3. RED BLOOD CELLS [Concomitant]
  4. PLATELETS [Concomitant]
  5. CIPROFLOXACIN [Concomitant]
  6. NEUPOGEN [Concomitant]
  7. ASPARAGINASE [Suspect]
  8. CYCLOPHOSPHAMIDE [Suspect]

REACTIONS (16)
  - BLOOD CULTURE POSITIVE [None]
  - BLOOD PRESSURE INADEQUATELY CONTROLLED [None]
  - BONE MARROW FAILURE [None]
  - CULTURE WOUND POSITIVE [None]
  - ESCHAR [None]
  - FEBRILE NEUTROPENIA [None]
  - IMMUNOSUPPRESSION [None]
  - LYMPHANGITIS [None]
  - MULTIPLE-DRUG RESISTANCE [None]
  - NECROTISING FASCIITIS [None]
  - ORCHIDECTOMY [None]
  - PSEUDOMONAS INFECTION [None]
  - SCROTAL INFECTION [None]
  - SCROTAL OEDEMA [None]
  - SEPTIC SHOCK [None]
  - STAPHYLOCOCCAL INFECTION [None]
